FAERS Safety Report 18612081 (Version 1)
Quarter: 2020Q4

REPORT INFORMATION
  Report Type: Spontaneous
  Country: US (occurrence: US)
  Receive Date: 20201214
  Receipt Date: 20201214
  Transmission Date: 20210114
  Serious: Yes (Hospitalization)
  Sender: FDA-Public Use
  Company Number: None

PATIENT
  Sex: Female

DRUGS (3)
  1. CARISPRODOL [Concomitant]
     Active Substance: CARISOPRODOL
     Dates: start: 20201211
  2. HYRDROCO/APAP [Concomitant]
     Dates: start: 20201211
  3. XELJANZ [Suspect]
     Active Substance: TOFACITINIB CITRATE
     Indication: RHEUMATOID ARTHRITIS
     Route: 048
     Dates: start: 20180215

REACTIONS (7)
  - Therapy interrupted [None]
  - Surgery [None]
  - Rheumatoid arthritis [None]
  - Joint swelling [None]
  - Unevaluable event [None]
  - Pain in extremity [None]
  - Condition aggravated [None]
